FAERS Safety Report 4450779-8 (Version None)
Quarter: 2004Q3

REPORT INFORMATION
  Report Type: 
  Country: None (occurrence: None)
  Receive Date: 20040914
  Receipt Date: 20040914
  Transmission Date: 20050211
  Serious: Yes (Hospitalization)
  Sender: FDA-Public Use
  Company Number: None

PATIENT
  Sex: Male
  Weight: 79.3795 kg

DRUGS (2)
  1. MITOXANTRONE [Suspect]
     Indication: PROSTATE CANCER METASTATIC
     Dosage: 14MG/M2   Q 21 DAYS   INTRAVENOUS
     Route: 042
     Dates: start: 20040817, end: 20040817
  2. PREDNISONE [Concomitant]

REACTIONS (1)
  - FEBRILE NEUTROPENIA [None]
